FAERS Safety Report 9342595 (Version 3)
Quarter: 2013Q3

REPORT INFORMATION
  Report Type: Spontaneous
  Country: IT (occurrence: IT)
  Receive Date: 20130611
  Receipt Date: 20130807
  Transmission Date: 20140515
  Serious: Yes (Hospitalization, Other)
  Sender: FDA-Public Use
  Company Number: IT-BRISTOL-MYERS SQUIBB COMPANY-18997353

PATIENT
  Age: 84 Year
  Sex: Female

DRUGS (8)
  1. COUMADIN TABS 5 MG [Suspect]
     Indication: ATRIAL FIBRILLATION
     Route: 048
     Dates: start: 20040101, end: 20130603
  2. OMEPRAZOLE [Concomitant]
     Route: 048
  3. BISOPROLOL HEMIFUMARATE [Concomitant]
     Route: 048
  4. AMIODARONE [Concomitant]
     Route: 048
  5. FUROSEMIDE [Concomitant]
     Route: 048
  6. ALLOPURINOL [Concomitant]
     Route: 048
  7. LASIX [Concomitant]
     Dosage: TABS
     Route: 048
  8. KANRENOL [Concomitant]
     Dosage: 25MG TABS
     Route: 048

REACTIONS (4)
  - Cardiac failure [Unknown]
  - International normalised ratio increased [Unknown]
  - Hypertransaminasaemia [Unknown]
  - Hypergammaglobulinaemia [Unknown]
